APPROVED DRUG PRODUCT: DOCOSANOL
Active Ingredient: DOCOSANOL
Strength: 10%
Dosage Form/Route: CREAM;TOPICAL
Application: A217090 | Product #001
Applicant: AUROBINDO PHARMA LTD
Approved: Mar 1, 2024 | RLD: No | RS: No | Type: OTC